FAERS Safety Report 9632817 (Version 1)
Quarter: 2013Q4

REPORT INFORMATION
  Report Type: Spontaneous
  Country: US (occurrence: US)
  Receive Date: 20131018
  Receipt Date: 20131018
  Transmission Date: 20140711
  Serious: Yes (Other)
  Sender: FDA-Public Use
  Company Number: US-GILEAD-2013-0085718

PATIENT
  Sex: Female

DRUGS (2)
  1. LETAIRIS [Suspect]
     Indication: PRODUCT USED FOR UNKNOWN INDICATION
     Dosage: 5 MG, QD
     Dates: start: 20130522
  2. REVATIO [Concomitant]

REACTIONS (5)
  - Ascites [Unknown]
  - Pulmonary mass [Unknown]
  - Productive cough [Unknown]
  - Dyspnoea [Unknown]
  - Fluid retention [Unknown]
